FAERS Safety Report 10210419 (Version 1)
Quarter: 2014Q2

REPORT INFORMATION
  Report Type: Spontaneous
  Country: US (occurrence: US)
  Receive Date: 20140602
  Receipt Date: 20140602
  Transmission Date: 20141212
  Serious: Yes (Other)
  Sender: FDA-Public Use
  Company Number: US-DSJP-DSU-2014-109387

PATIENT
  Sex: 0

DRUGS (8)
  1. BENICAR [Suspect]
     Indication: BLOOD PRESSURE
     Dosage: 1/2 TABLET, DAILY
     Route: 048
  2. BYSTOLIC [Suspect]
     Indication: PRODUCT USED FOR UNKNOWN INDICATION
     Dosage: 1/2 TABLET, DAILY
     Route: 048
  3. ENOXAPARIN SODIUM [Suspect]
     Indication: ANTICOAGULANT THERAPY
     Dosage: 120 MG, QD
     Route: 058
     Dates: start: 201402
  4. NORCO [Concomitant]
     Indication: PAIN
     Dosage: UNK
  5. SOMA [Concomitant]
     Indication: MUSCLE SPASMS
     Dosage: UNK
  6. LORAZEPAM [Concomitant]
     Indication: ANXIETY
     Dosage: UNK
  7. AMBIEN [Concomitant]
     Indication: SLEEP DISORDER
     Dosage: UNK
  8. DOXYCYCLINE HYCLATE [Concomitant]
     Indication: INFECTION PROPHYLAXIS
     Dosage: UNK

REACTIONS (15)
  - Blood pressure decreased [Recovered/Resolved]
  - Chest pain [Not Recovered/Not Resolved]
  - Thrombosis [Unknown]
  - Aneurysm [Unknown]
  - Dyspnoea [Unknown]
  - Hot flush [Not Recovered/Not Resolved]
  - Nausea [Not Recovered/Not Resolved]
  - Head injury [Recovered/Resolved]
  - Fall [Recovered/Resolved]
  - Nerve compression [Not Recovered/Not Resolved]
  - Muscle spasms [Not Recovered/Not Resolved]
  - Malaise [Not Recovered/Not Resolved]
  - Asthenia [Not Recovered/Not Resolved]
  - Bronchitis [Unknown]
  - Weight increased [Recovered/Resolved]
